FAERS Safety Report 5676513-1 (Version None)
Quarter: 2008Q2

REPORT INFORMATION
  Report Type: 
  Country: None (occurrence: None)
  Receive Date: 20080311
  Receipt Date: 20071210
  Transmission Date: 20081010
  Serious: No
  Sender: FDA-Public Use
  Company Number: 002#2#2007-00377

PATIENT
  Age: 75 Year
  Sex: Male
  Weight: 74.8435 kg

DRUGS (7)
  1. NEUPRO [Suspect]
     Indication: PARKINSON'S DISEASE
     Dosage: 2MG/24H,1 IN 1 D, TRANSDERMAL; 4MG/24H,1 IN 1 D,TRANSDERMAL;6MG/24H,1 IN 1 D,TRANSDERMAL
     Route: 062
     Dates: start: 20071001, end: 20071007
  2. NEUPRO [Suspect]
     Indication: PARKINSON'S DISEASE
     Dosage: 2MG/24H,1 IN 1 D, TRANSDERMAL; 4MG/24H,1 IN 1 D,TRANSDERMAL;6MG/24H,1 IN 1 D,TRANSDERMAL
     Route: 062
     Dates: start: 20071008, end: 20071014
  3. NEUPRO [Suspect]
     Indication: PARKINSON'S DISEASE
     Dosage: 2MG/24H,1 IN 1 D, TRANSDERMAL; 4MG/24H,1 IN 1 D,TRANSDERMAL;6MG/24H,1 IN 1 D,TRANSDERMAL
     Route: 062
     Dates: start: 20071015
  4. CARBIDOPA AND LEVODOPA [Concomitant]
  5. MIRAPEX [Concomitant]
  6. SYNTHROID [Concomitant]
  7. SELEGILINE HCL [Concomitant]

REACTIONS (3)
  - APPLICATION SITE ERYTHEMA [None]
  - APPLICATION SITE PRURITUS [None]
  - APPLICATION SITE REACTION [None]
